FAERS Safety Report 23661992 (Version 2)
Quarter: 2024Q2

REPORT INFORMATION
  Report Type: Spontaneous
  Country: US (occurrence: US)
  Receive Date: 20240322
  Receipt Date: 20240416
  Transmission Date: 20240716
  Serious: Yes (Hospitalization, Other)
  Sender: FDA-Public Use
  Company Number: US-MLMSERVICE-20240301-4862081-1

PATIENT
  Age: 7 Decade
  Sex: Male

DRUGS (5)
  1. CALCIUM CARBONATE [Suspect]
     Active Substance: CALCIUM CARBONATE
     Indication: Hypocalcaemia
     Dosage: 12 GRAM, QD
     Route: 065
  2. OCTREOTIDE [Suspect]
     Active Substance: OCTREOTIDE\OCTREOTIDE ACETATE
     Indication: Lymphatic fistula
     Dosage: 100 MILLIGRAM, Q8H
     Route: 058
  3. CALCITRIOL [Concomitant]
     Active Substance: CALCITRIOL
     Indication: Product used for unknown indication
     Dosage: 2 MICROGRAM, QD;VIA GASTROSTOMY TUBE
     Route: 065
  4. HYDROCHLOROTHIAZIDE [Concomitant]
     Active Substance: HYDROCHLOROTHIAZIDE
     Indication: Product used for unknown indication
     Dosage: 12.5 MILLIGRAM;VIA GASTROSTOMY TUBE
     Route: 065
  5. VITAMIN D2 [Concomitant]
     Active Substance: ERGOCALCIFEROL
     Indication: Product used for unknown indication
     Dosage: 50000 INTERNATIONAL UNIT, QD;VIA GASTROSTOMY TUBE
     Route: 065

REACTIONS (3)
  - Hypocalcaemia [Recovering/Resolving]
  - Drug interaction [Recovering/Resolving]
  - Gastric pH increased [Recovering/Resolving]
